FAERS Safety Report 5292699-5 (Version None)
Quarter: 2007Q2

REPORT INFORMATION
  Report Type: 
  Country: None (occurrence: None)
  Receive Date: 20070404
  Receipt Date: 20070330
  Transmission Date: 20071010
  Serious: Yes (Hospitalization)
  Sender: FDA-Public Use
  Company Number: SP01192

PATIENT
  Age: 32 Year
  Sex: Male
  Weight: 116.5744 kg

DRUGS (1)
  1. COLAZAL [Suspect]
     Indication: COLITIS ULCERATIVE
     Dosage: 7500 MG (3750 MG, 2 IN 1 D), ORAL
     Route: 048
     Dates: start: 20050101

REACTIONS (5)
  - ANGIOEDEMA [None]
  - DYSPHAGIA [None]
  - ERYTHEMA [None]
  - PRURITUS [None]
  - WHITE BLOOD CELL COUNT INCREASED [None]
